FAERS Safety Report 4375167-4 (Version None)
Quarter: 2004Q2

REPORT INFORMATION
  Report Type: 
  Country: None (occurrence: None)
  Receive Date: 20040603
  Receipt Date: 20040514
  Transmission Date: 20050107
  Serious: Yes (Hospitalization)
  Sender: FDA-Public Use
  Company Number: DE_040513603

PATIENT
  Age: 65 Year
  Sex: Male

DRUGS (10)
  1. ZYPREXA [Suspect]
     Dosage: 15 MG DAY
     Dates: end: 20040101
  2. ANAESTHETIC [Concomitant]
  3. LAMOTRIGINE [Concomitant]
  4. CARBAMAZEPINE [Concomitant]
  5. LASIX [Concomitant]
  6. XIMOVAN (ZOPICLONE) [Concomitant]
  7. EBIXA (MEMANTINE HYDROCHLORIEDE) [Concomitant]
  8. TRAMAL (TRAMADOL HYDROCHLORIDE) [Concomitant]
  9. CALCIUM [Concomitant]
  10. VITAMIN D [Concomitant]

REACTIONS (6)
  - COGNITIVE DISORDER [None]
  - DRUG INTERACTION [None]
  - DRUG LEVEL INCREASED [None]
  - FALL [None]
  - FEMORAL NECK FRACTURE [None]
  - SEDATION [None]
